FAERS Safety Report 10016190 (Version 1)
Quarter: 2014Q1

REPORT INFORMATION
  Report Type: Spontaneous
  Country: DE (occurrence: DE)
  Receive Date: 20140317
  Receipt Date: 20140317
  Transmission Date: 20141002
  Serious: Yes (Congenital Anomaly)
  Sender: FDA-Public Use
  Company Number: DE-MYLANLABS-2014S1005056

PATIENT
  Age: 1 Day
  Sex: Male
  Weight: 3.71 kg

DRUGS (3)
  1. AZATHIOPRINE [Suspect]
     Indication: CROHN^S DISEASE
     Dosage: 100 [MG/D ]
     Route: 064
     Dates: start: 20120718, end: 20130409
  2. PANTOPRAZOL [Concomitant]
     Indication: CROHN^S DISEASE
     Route: 064
     Dates: start: 20120718, end: 20130409
  3. MEDIVITAN [Concomitant]
     Indication: VITAMIN B COMPLEX DEFICIENCY
     Route: 064
     Dates: start: 20120718, end: 20130409

REACTIONS (4)
  - Atrial septal defect [Not Recovered/Not Resolved]
  - Hydrocele [Unknown]
  - Cardiac septal hypertrophy [Recovered/Resolved]
  - Exposure during pregnancy [Recovered/Resolved]
